FAERS Safety Report 16000449 (Version 2)
Quarter: 2019Q1

REPORT INFORMATION
  Report Type: Report from Study
  Country: JP (occurrence: JP)
  Receive Date: 20190225
  Receipt Date: 20190317
  Transmission Date: 20190418
  Serious: Yes (Life-Threatening)
  Sender: FDA-Public Use
  Company Number: JP-B.I. PHARMACEUTICALS,INC./RIDGEFIELD-2018-NB-004291

PATIENT
  Age: 83 Year
  Sex: Female
  Weight: 53 kg

DRUGS (8)
  1. PIRFENIDONE. [Concomitant]
     Active Substance: PIRFENIDONE
     Indication: IDIOPATHIC PULMONARY FIBROSIS
     Route: 065
     Dates: start: 20180706
  2. LIXIANA [Concomitant]
     Active Substance: EDOXABAN TOSYLATE
     Indication: PRODUCT USED FOR UNKNOWN INDICATION
     Route: 065
     Dates: start: 20180109
  3. BIBF 1120 [Suspect]
     Active Substance: NINTEDANIB
     Indication: IDIOPATHIC PULMONARY FIBROSIS
     Route: 065
     Dates: start: 20170706, end: 20170720
  4. PREDNISOLONE. [Concomitant]
     Active Substance: PREDNISOLONE
     Indication: IDIOPATHIC PULMONARY FIBROSIS
     Route: 065
  5. BISOPROLOL FUMARATE. [Concomitant]
     Active Substance: BISOPROLOL FUMARATE
     Indication: PRODUCT USED FOR UNKNOWN INDICATION
     Route: 065
     Dates: start: 20180111
  6. BIBF 1120 [Suspect]
     Active Substance: NINTEDANIB
     Route: 065
     Dates: start: 20170724, end: 20180102
  7. BIBF 1120 [Suspect]
     Active Substance: NINTEDANIB
     Route: 065
     Dates: start: 20180110, end: 20180705
  8. RABEPRAZOLE NA [Concomitant]
     Active Substance: RABEPRAZOLE SODIUM
     Indication: PRODUCT USED FOR UNKNOWN INDICATION
     Route: 065

REACTIONS (8)
  - Vomiting [Recovered/Resolved]
  - Diarrhoea [Recovered/Resolved]
  - Constipation [Recovered/Resolved]
  - Dehydration [Recovered/Resolved]
  - Hepatic function abnormal [Recovered/Resolved]
  - Pneumothorax [Not Recovered/Not Resolved]
  - Hepatic function abnormal [Recovered/Resolved]
  - Idiopathic pulmonary fibrosis [Recovered/Resolved]

NARRATIVE: CASE EVENT DATE: 20170720
